FAERS Safety Report 4348634-7 (Version None)
Quarter: 2004Q2

REPORT INFORMATION
  Report Type: 
  Country: None (occurrence: None)
  Receive Date: 20040423
  Receipt Date: 20040414
  Transmission Date: 20050107
  Serious: Yes (Hospitalization)
  Sender: FDA-Public Use
  Company Number: 2004GB00911

PATIENT
  Sex: Male

DRUGS (2)
  1. CRESTOR [Suspect]
  2. WARFARIN SODIUM [Concomitant]

REACTIONS (1)
  - EPISTAXIS [None]
